FAERS Safety Report 8585263-3 (Version None)
Quarter: 2012Q3

REPORT INFORMATION
  Report Type: 
  Country: None (occurrence: None)
  Receive Date: 20120810
  Receipt Date: 20120801
  Transmission Date: 20120928
  Serious: Yes (Other)
  Sender: FDA-Public Use
  Company Number: SE-B.I. PHARMACEUTICALS,INC./RIDGEFIELD-2012-SW-00481SW

PATIENT
  Sex: Female
  Weight: 89 kg

DRUGS (5)
  1. PRADAXA [Suspect]
     Indication: THROMBOSIS PROPHYLAXIS
     Dosage: 300 MG
     Route: 048
     Dates: start: 20110101
  2. SIMVASTATIN [Concomitant]
     Dosage: 40 MG
  3. METOPROLOL TARTRATE [Concomitant]
     Indication: HYPERTENSION
     Dosage: 100 MG
  4. ZOPIKLON [Concomitant]
     Indication: INSOMNIA
  5. LOSARTAN POTASSIUM [Concomitant]
     Indication: HYPERTENSION
     Dosage: 50 MG

REACTIONS (3)
  - HAEMATOCHEZIA [None]
  - ABDOMINAL PAIN UPPER [None]
  - WEIGHT DECREASED [None]
